FAERS Safety Report 6754878-7 (Version None)
Quarter: 2010Q2

REPORT INFORMATION
  Report Type: 
  Country: None (occurrence: None)
  Receive Date: 20100524
  Receipt Date: 20100217
  Transmission Date: 20101027
  Serious: No
  Sender: FDA-Public Use
  Company Number: 006215

PATIENT
  Sex: Female

DRUGS (3)
  1. CIMZIA [Suspect]
     Indication: CROHN'S DISEASE
     Dosage: 400 MG SUBCUTANEOUS
     Route: 058
     Dates: start: 20100106
  2. CIMZIA [Suspect]
     Indication: PROCTITIS ULCERATIVE
     Dosage: 400 MG SUBCUTANEOUS
     Route: 058
     Dates: start: 20100106
  3. SEASONALE [Concomitant]

REACTIONS (3)
  - NASOPHARYNGITIS [None]
  - OFF LABEL USE [None]
  - VISION BLURRED [None]
